FAERS Safety Report 19270544 (Version 5)
Quarter: 2022Q3

REPORT INFORMATION
  Report Type: Report from Study
  Country: US (occurrence: US)
  Receive Date: 20210518
  Receipt Date: 20220725
  Transmission Date: 20221027
  Serious: Yes (Hospitalization)
  Sender: FDA-Public Use
  Company Number: US-NOVARTISPH-NVSC2021US094616

PATIENT
  Age: 72 Year
  Sex: Female
  Weight: 54 kg

DRUGS (10)
  1. SPARTALIZUMAB [Suspect]
     Active Substance: SPARTALIZUMAB
     Indication: Non-small cell lung cancer metastatic
     Dosage: 400 MG, Q4W
     Route: 042
     Dates: start: 20210416, end: 20210416
  2. CAPMATINIB [Suspect]
     Active Substance: CAPMATINIB
     Indication: Non-small cell lung cancer metastatic
     Dosage: 400 MG, 2 TIMES PER DAY
     Route: 048
     Dates: start: 20210416, end: 20210514
  3. CAPMATINIB [Suspect]
     Active Substance: CAPMATINIB
     Indication: Non-small cell lung cancer metastatic
     Dosage: NO TREATMENT
     Route: 065
  4. INVESTIGATIONAL PRODUCT [Suspect]
     Active Substance: INVESTIGATIONAL PRODUCT
     Indication: Non-small cell lung cancer metastatic
     Dosage: NO TREATMENT
     Route: 065
  5. SPARTALIZUMAB [Suspect]
     Active Substance: SPARTALIZUMAB
     Indication: Non-small cell lung cancer metastatic
     Dosage: NO TREATMENT
     Route: 065
  6. PLACEBO [Suspect]
     Active Substance: UNSPECIFIED INGREDIENT
     Indication: Non-small cell lung cancer metastatic
     Dosage: NO TREATMENT
     Route: 065
  7. CABERGOLINE [Concomitant]
     Active Substance: CABERGOLINE
     Indication: Prophylaxis
     Dosage: 0.25 MG, BIW
     Route: 065
     Dates: start: 20150403
  8. PREDNISONE [Concomitant]
     Active Substance: PREDNISONE
     Indication: Secondary adrenocortical insufficiency
     Dosage: 4 MG, QD
     Route: 048
     Dates: start: 20160512
  9. LEVOTHYROXINE [Concomitant]
     Active Substance: LEVOTHYROXINE
     Indication: Hypothyroidism
     Dosage: 75 UG, OTHER
     Route: 048
     Dates: start: 20150121
  10. ATORVASTATIN [Concomitant]
     Active Substance: ATORVASTATIN
     Indication: Hypercholesterolaemia
     Dosage: 20 MG, QD
     Route: 048
     Dates: start: 20150721

REACTIONS (1)
  - Rash maculo-papular [Recovering/Resolving]

NARRATIVE: CASE EVENT DATE: 20210424
